FAERS Safety Report 21586673 (Version 1)
Quarter: 2022Q4

REPORT INFORMATION
  Report Type: Other
  Country: None (occurrence: LB)
  Receive Date: 20221113
  Receipt Date: 20221113
  Transmission Date: 20230112
  Serious: Yes (Other)
  Sender: FDA-Public Use
  Company Number: LB-B.Braun Medical Inc.-2134811

PATIENT
  Age: 34 Year
  Sex: Male

DRUGS (2)
  1. SODIUM CHLORIDE FOR IRRIGATION [Suspect]
     Active Substance: SODIUM CHLORIDE
  2. PHENTOLAMINE [Suspect]
     Active Substance: PHENTOLAMINE

REACTIONS (1)
  - Drug ineffective [Unknown]
